FAERS Safety Report 14339754 (Version 3)
Quarter: 2018Q2

REPORT INFORMATION
  Report Type: Spontaneous
  Country: DE (occurrence: DE)
  Receive Date: 20171230
  Receipt Date: 20180418
  Transmission Date: 20180711
  Serious: Yes (Hospitalization)
  Sender: FDA-Public Use
  Company Number: DE-BAUSCH-BL-2017-035152

PATIENT
  Age: 69 Year
  Sex: Male
  Weight: 62 kg

DRUGS (9)
  1. DEXAMETHASONE. [Suspect]
     Active Substance: DEXAMETHASONE
     Indication: PRODUCT USED FOR UNKNOWN INDICATION
     Dosage: LAST ADMINISTRATION PRIOR TO EVENT ONSET 02/NOV/2015
     Route: 065
  2. CARBOPLATIN. [Suspect]
     Active Substance: CARBOPLATIN
     Indication: PRODUCT USED FOR UNKNOWN INDICATION
     Dosage: LAST ADMINISTRATION PRIOR TO EVENT ONSET 30/OCT/2015
     Route: 065
  3. RITUXIMAB. [Suspect]
     Active Substance: RITUXIMAB
     Indication: PRODUCT USED FOR UNKNOWN INDICATION
     Dosage: LAST ADMINISTRATION PRIOR TO EVENT ONSET 29/OCT/2015
     Route: 065
  4. CISPLATIN. [Suspect]
     Active Substance: CISPLATIN
     Indication: PRODUCT USED FOR UNKNOWN INDICATION
     Dosage: LAST ADMINISTRATION PRIOR TO EVENT ONSET 30/OCT/2015
     Route: 065
  5. PANTOZOL [Concomitant]
     Active Substance: PANTOPRAZOLE SODIUM
     Indication: PRODUCT USED FOR UNKNOWN INDICATION
  6. CYTARABINE. [Suspect]
     Active Substance: CYTARABINE
     Indication: PRODUCT USED FOR UNKNOWN INDICATION
     Dosage: 3800 MG, TOTAL DOSE?LAST ADMINISTRATION PRIOR TO EVENT ONSET 31/OCT/2015
     Route: 065
  7. TEMSIROLIMUS [Suspect]
     Active Substance: TEMSIROLIMUS
     Indication: PRODUCT USED FOR UNKNOWN INDICATION
     Dosage: ON DAY 1 AND 8 IN EACH CYCLE;?LAST ADMINISTRATION PRIOR TO EVENT ONSET 28/OCT/2015
     Route: 065
     Dates: start: 20150916
  8. EMEND [Concomitant]
     Active Substance: APREPITANT
     Indication: PRODUCT USED FOR UNKNOWN INDICATION
     Dosage: 125/80/80 MG PER DAY
     Dates: start: 20151028, end: 20151030
  9. GRANISETRON [Concomitant]
     Active Substance: GRANISETRON
     Indication: PRODUCT USED FOR UNKNOWN INDICATION
     Dosage: 1 MG PRN; AS NECESSARY
     Route: 042
     Dates: start: 20151028

REACTIONS (1)
  - Decreased appetite [Recovered/Resolved]

NARRATIVE: CASE EVENT DATE: 20151102
